FAERS Safety Report 6582803-0 (Version None)
Quarter: 2010Q1

REPORT INFORMATION
  Report Type: 
  Country: None (occurrence: None)
  Receive Date: 20100216
  Receipt Date: 20100210
  Transmission Date: 20100710
  Serious: Yes (Other)
  Sender: FDA-Public Use
  Company Number: JP-PFIZER INC-2010014777

PATIENT
  Sex: Female

DRUGS (2)
  1. PROVERA [Suspect]
     Route: 048
  2. ESTRADIOL [Suspect]
     Route: 062

REACTIONS (1)
  - TUMOUR MARKER INCREASED [None]
